FAERS Safety Report 8110177-2 (Version None)
Quarter: 2012Q1

REPORT INFORMATION
  Report Type: 
  Country: None (occurrence: None)
  Receive Date: 20120202
  Receipt Date: 20120125
  Transmission Date: 20120608
  Serious: No
  Sender: FDA-Public Use
  Company Number: US-AMGEN-USASP2012005257

PATIENT
  Age: 53 Year
  Sex: Female

DRUGS (3)
  1. ARAVA [Concomitant]
     Dosage: UNK
  2. ENBREL [Suspect]
     Indication: RHEUMATOID ARTHRITIS
     Dosage: 50 MG, QWK
     Dates: start: 20120123
  3. PLAQUENIL [Concomitant]
     Dosage: UNK

REACTIONS (8)
  - PARAESTHESIA [None]
  - MUSCULOSKELETAL PAIN [None]
  - NECK PAIN [None]
  - MUSCULOSKELETAL STIFFNESS [None]
  - HYPOAESTHESIA [None]
  - ARTHRALGIA [None]
  - PAIN [None]
  - PAIN IN EXTREMITY [None]
